FAERS Safety Report 21888932 (Version 5)
Quarter: 2024Q1

REPORT INFORMATION
  Report Type: Other
  Country: DE (occurrence: None)
  Receive Date: 20230120
  Receipt Date: 20240318
  Transmission Date: 20240410
  Serious: No
  Sender: FDA-Public Use
  Company Number: DE-ROCHE-3268505

PATIENT
  Age: 26 Year
  Sex: Female

DRUGS (4)
  1. OCREVUS [Suspect]
     Active Substance: OCRELIZUMAB
     Indication: Relapsing multiple sclerosis
     Route: 042
     Dates: start: 20200709, end: 20200723
  2. OCREVUS [Suspect]
     Active Substance: OCRELIZUMAB
     Route: 042
     Dates: start: 20210126, end: 20210126
  3. DIENOGEST [Concomitant]
     Active Substance: DIENOGEST
     Indication: Contraception
     Route: 048
  4. DIMETHINDENE [Concomitant]
     Active Substance: DIMETHINDENE
     Indication: Rash
     Route: 048
     Dates: start: 20200709, end: 20200709

REACTIONS (2)
  - COVID-19 [Recovered/Resolved]
  - Coronavirus infection [Recovered/Resolved]

NARRATIVE: CASE EVENT DATE: 20220812
